FAERS Safety Report 5261150-3 (Version None)
Quarter: 2007Q1

REPORT INFORMATION
  Report Type: 
  Country: None (occurrence: None)
  Receive Date: 20070309
  Receipt Date: 20070227
  Transmission Date: 20070707
  Serious: Yes (Hospitalization)
  Sender: FDA-Public Use
  Company Number: NL-PFIZER INC-2006132365

PATIENT
  Sex: Female
  Weight: 70 kg

DRUGS (1)
  1. TOLTERODINE [Suspect]
     Indication: HYPERTONIC BLADDER
     Route: 048
     Dates: start: 20061012, end: 20061016

REACTIONS (1)
  - GASTRITIS [None]
